FAERS Safety Report 8929194 (Version 2)
Quarter: 2013Q1

REPORT INFORMATION
  Report Type: Report from Study
  Country: GB (occurrence: GB)
  Receive Date: 20121127
  Receipt Date: 20130311
  Transmission Date: 20140127
  Serious: Yes (Other)
  Sender: FDA-Public Use
  Company Number: GB-VERTEX PHARMACEUTICAL INC.-000000000000000930

PATIENT
  Age: 38 Year
  Sex: Male

DRUGS (9)
  1. VX-950 (TELAPREVIR) [Suspect]
     Indication: HEPATITIS C
     Dosage: 750 MG, TID
     Route: 048
     Dates: start: 20120530, end: 20120822
  2. PEG-INTERFERON [Suspect]
     Indication: HEPATITIS C
     Dosage: DOSAGE FORM: INJECTION
     Route: 058
     Dates: start: 20120530
  3. RIBAVIRIN [Suspect]
     Indication: HEPATITIS C
     Dosage: DOSAGE FORM: UNSPECIFIED
     Route: 048
     Dates: start: 20120530
  4. ZOPICLONE [Concomitant]
     Dosage: DOSAGE FORM: UNSPECIFIED
     Route: 065
  5. DIAZEPAM [Concomitant]
     Dosage: DOSAGE FORM: UNSPECIFIED
     Route: 065
  6. VITAMIN [Concomitant]
     Dosage: DOSAGE FORM: UNSPECIFIED
     Route: 065
  7. DOTHIEPIN [Concomitant]
     Dosage: DOSAGE FORM: UNSPECIFIED
     Route: 065
  8. METHADONE HYDROCHLORIDE [Concomitant]
     Indication: DRUG DEPENDENCE
     Route: 065
  9. PROPRANOLOL HCL [Concomitant]
     Dosage: DOSAGE FORM: UNSPECIFIED
     Route: 065

REACTIONS (10)
  - Depressed mood [Not Recovered/Not Resolved]
  - Confusional state [Not Recovered/Not Resolved]
  - Anaemia [Unknown]
  - Dyspnoea [Unknown]
  - Fatigue [Not Recovered/Not Resolved]
  - Diarrhoea [Not Recovered/Not Resolved]
  - Rash [Not Recovered/Not Resolved]
  - Nausea [Not Recovered/Not Resolved]
  - Contusion [Unknown]
  - Urinary incontinence [Not Recovered/Not Resolved]
